FAERS Safety Report 18496548 (Version 1)
Quarter: 2020Q4

REPORT INFORMATION
  Report Type: Spontaneous
  Country: US (occurrence: US)
  Receive Date: 20201112
  Receipt Date: 20201112
  Transmission Date: 20210114
  Serious: No
  Sender: FDA-Public Use
  Company Number: None

PATIENT
  Age: 41 Year
  Sex: Female
  Weight: 83.25 kg

DRUGS (3)
  1. AIMOVIG [Suspect]
     Active Substance: ERENUMAB-AOOE
     Indication: MIGRAINE
     Dosage: ?          OTHER FREQUENCY:MONTHLY INJECTION;?
     Route: 030
  2. SPRINTEC [Concomitant]
     Active Substance: ETHINYL ESTRADIOL\NORGESTIMATE
  3. BIOTIN [Concomitant]
     Active Substance: BIOTIN

REACTIONS (2)
  - Trichorrhexis [None]
  - Alopecia [None]

NARRATIVE: CASE EVENT DATE: 20201112
